FAERS Safety Report 18659140 (Version 2)
Quarter: 2020Q4

REPORT INFORMATION
  Report Type: Report from Study
  Country: CA (occurrence: CA)
  Receive Date: 20201223
  Receipt Date: 20201229
  Transmission Date: 20210114
  Serious: Yes (Other)
  Sender: FDA-Public Use
  Company Number: CA-JNJFOC-20201243303

PATIENT
  Age: 14 Year
  Sex: Male
  Weight: 47 kg

DRUGS (2)
  1. REMICADE [Suspect]
     Active Substance: INFLIXIMAB
     Indication: COLITIS ULCERATIVE
     Route: 042
     Dates: start: 20201009
  2. REMICADE [Suspect]
     Active Substance: INFLIXIMAB
     Dosage: ON 22/DEC/2020, THE PATIENT HAD RECEIVED 4TH DOSE OF 400 MG.
     Route: 042
     Dates: start: 20201222

REACTIONS (3)
  - Off label use [Unknown]
  - Colitis ulcerative [Not Recovered/Not Resolved]
  - Product use issue [Unknown]

NARRATIVE: CASE EVENT DATE: 2020
